FAERS Safety Report 25878563 (Version 1)
Quarter: 2025Q4

REPORT INFORMATION
  Report Type: Report from Study
  Country: US (occurrence: US)
  Receive Date: 20251003
  Receipt Date: 20251003
  Transmission Date: 20260118
  Serious: Yes (Other)
  Sender: ABBVIE
  Company Number: US-ABBVIE-6484710

PATIENT
  Sex: Male

DRUGS (1)
  1. HUMIRA [Suspect]
     Active Substance: ADALIMUMAB
     Indication: Psoriasis
     Route: 058
     Dates: start: 20180701

REACTIONS (4)
  - Cyst [Recovered/Resolved]
  - Inflammation [Recovered/Resolved]
  - Staphylococcal infection [Unknown]
  - Cyst [Recovered/Resolved]
